FAERS Safety Report 9878244 (Version 1)
Quarter: 2014Q1

REPORT INFORMATION
  Report Type: Spontaneous
  Country: IT (occurrence: IT)
  Receive Date: 20140206
  Receipt Date: 20140206
  Transmission Date: 20141002
  Serious: Yes (Hospitalization)
  Sender: FDA-Public Use
  Company Number: IT-BAYER-2014-018727

PATIENT
  Age: 78 Year
  Sex: Female

DRUGS (9)
  1. CARDIOASPIRIN [Suspect]
     Indication: ANGINA PECTORIS
     Dosage: DAILY DOSE 1 DF
     Route: 048
     Dates: start: 20130101, end: 20131126
  2. METFORMIN [Concomitant]
     Route: 048
  3. TORVAST [Concomitant]
     Route: 048
  4. TRIATEC [Concomitant]
     Route: 048
  5. NEBILOX [Concomitant]
     Route: 048
  6. NITROCOR [Concomitant]
     Route: 062
  7. PEPTAZOL [Concomitant]
     Route: 048
  8. LASIX [Concomitant]
     Dosage: UNK
     Route: 048
  9. RILATEN [Concomitant]
     Dosage: DAILY DOSE 2 DF

REACTIONS (4)
  - Abdominal pain [Unknown]
  - Vomiting [Unknown]
  - Petechiae [Unknown]
  - Hiatus hernia [Unknown]
